FAERS Safety Report 7556929-9 (Version None)
Quarter: 2011Q2

REPORT INFORMATION
  Report Type: 
  Country: None (occurrence: None)
  Receive Date: 20110620
  Receipt Date: 20110606
  Transmission Date: 20111010
  Serious: Yes (Hospitalization, Other)
  Sender: FDA-Public Use
  Company Number: PHHY2011ES49737

PATIENT
  Age: 72 Year
  Sex: Female

DRUGS (6)
  1. PROGRAF [Suspect]
     Dosage: 3 MG, DAILY
     Route: 048
     Dates: start: 20001018, end: 20110415
  2. SIMVASTATIN [Concomitant]
     Dosage: 10 MG, UNK
  3. LOSARTAN POTASSIUM [Concomitant]
     Dosage: 50 MG, UNK
  4. DOXAZOSIN MESYLATE [Concomitant]
     Dosage: 8 MG, UNK
  5. LEVOTHYROXINE SODIUM [Concomitant]
     Dosage: 50 MCG
  6. MYFORTIC [Suspect]
     Indication: LIVER TRANSPLANT
     Dosage: 1.1 G, DAILY
     Route: 048
     Dates: start: 20001018, end: 20110415

REACTIONS (7)
  - BLOOD BICARBONATE ABNORMAL [None]
  - BLOOD SODIUM ABNORMAL [None]
  - BLOOD GLUCOSE INCREASED [None]
  - RENAL FAILURE [None]
  - IMMUNOSUPPRESSANT DRUG LEVEL INCREASED [None]
  - GAMMA-GLUTAMYLTRANSFERASE INCREASED [None]
  - BLOOD CREATININE INCREASED [None]
